FAERS Safety Report 15868954 (Version 1)
Quarter: 2019Q1

REPORT INFORMATION
  Report Type: Spontaneous
  Country: US (occurrence: US)
  Receive Date: 20190125
  Receipt Date: 20190125
  Transmission Date: 20190417
  Serious: Yes (Other)
  Sender: FDA-Public Use
  Company Number: None

PATIENT
  Age: 79 Year
  Sex: Female
  Weight: 88.2 kg

DRUGS (12)
  1. GLIMEPIRIDE. [Concomitant]
     Active Substance: GLIMEPIRIDE
  2. OMEGA 3-6-9 [Concomitant]
     Active Substance: FISH OIL
  3. CALCIUM CARBONATE. [Concomitant]
     Active Substance: CALCIUM CARBONATE
  4. ARIMIDEX [Concomitant]
     Active Substance: ANASTROZOLE
  5. FERROUS SULFATE. [Concomitant]
     Active Substance: FERROUS SULFATE
  6. ALENDRONATE SODIUM. [Concomitant]
     Active Substance: ALENDRONATE SODIUM
  7. ASPIRIN 81 [Concomitant]
     Active Substance: ASPIRIN
  8. LISINOPRIL. [Concomitant]
     Active Substance: LISINOPRIL
  9. METFORMIN HCL [Concomitant]
     Active Substance: METFORMIN HYDROCHLORIDE
  10. SIMVASTATIN. [Concomitant]
     Active Substance: SIMVASTATIN
  11. IBRANCE [Suspect]
     Active Substance: PALBOCICLIB
     Dates: start: 20181231, end: 20190124
  12. COREG [Concomitant]
     Active Substance: CARVEDILOL

REACTIONS (1)
  - Alopecia [None]

NARRATIVE: CASE EVENT DATE: 20190124
